FAERS Safety Report 10196565 (Version 2)
Quarter: 2014Q2

REPORT INFORMATION
  Report Type: Spontaneous
  Country: US (occurrence: US)
  Receive Date: 20140527
  Receipt Date: 20140623
  Transmission Date: 20141212
  Serious: No
  Sender: FDA-Public Use
  Company Number: US-B.I. PHARMACEUTICALS,INC./RIDGEFIELD-2014-BI-21755BP

PATIENT
  Age: 65 Year
  Sex: Female
  Weight: 84 kg

DRUGS (5)
  1. SPIRIVA [Suspect]
     Indication: CHRONIC OBSTRUCTIVE PULMONARY DISEASE
     Dosage: 18 MCG
     Route: 048
     Dates: start: 20140515, end: 20140515
  2. SPIRIVA [Suspect]
     Dosage: 18 MCG
     Route: 055
  3. DILTIAZEM [Concomitant]
     Indication: CARDIAC DISORDER
     Dosage: 180 MG
     Route: 048
  4. DUO NEBS [Concomitant]
     Dosage: FORMULATION:INHALATION AEROSOL
     Route: 055
  5. VENTOLIN [Concomitant]
     Dosage: FORMULAITON:INHALATION AEROSOL
     Route: 055

REACTIONS (6)
  - Dyspnoea [Recovered/Resolved]
  - Weight increased [Not Recovered/Not Resolved]
  - Weight decreased [Recovered/Resolved]
  - Headache [Not Recovered/Not Resolved]
  - Incorrect route of drug administration [Recovered/Resolved]
  - Product quality issue [Unknown]
